FAERS Safety Report 18217409 (Version 1)
Quarter: 2020Q3

REPORT INFORMATION
  Report Type: Spontaneous
  Country: SE (occurrence: SE)
  Receive Date: 20200901
  Receipt Date: 20200901
  Transmission Date: 20201103
  Serious: Yes (Other)
  Sender: FDA-Public Use
  Company Number: SE-009507513-2008SWE014389

PATIENT
  Age: 18 Year
  Sex: Female
  Weight: 55 kg

DRUGS (1)
  1. NEXPLANON [Suspect]
     Active Substance: ETONOGESTREL
     Indication: CONTRACEPTION
     Dosage: UNK
     Dates: start: 2002, end: 2012

REACTIONS (4)
  - Osteoporosis [Recovered/Resolved]
  - Atrophic vulvovaginitis [Recovered/Resolved]
  - Female reproductive tract disorder [Recovered/Resolved]
  - Vestibulitis [Recovered/Resolved]

NARRATIVE: CASE EVENT DATE: 2002
